FAERS Safety Report 9523194 (Version 3)
Quarter: 2014Q1

REPORT INFORMATION
  Report Type: Spontaneous
  Country: JP (occurrence: JP)
  Receive Date: 20130913
  Receipt Date: 20140129
  Transmission Date: 20141002
  Serious: Yes (Life-Threatening, Hospitalization)
  Sender: FDA-Public Use
  Company Number: JP-GLAXOSMITHKLINE-B0922300A

PATIENT
  Age: 58 Year
  Sex: Male

DRUGS (11)
  1. ABILIFY [Concomitant]
     Indication: DEPRESSION
     Dosage: 3MG THREE TIMES PER DAY
     Route: 048
     Dates: start: 20130628, end: 20130804
  2. RISPERIDONE [Concomitant]
     Indication: DEPRESSION
     Dosage: 1MG TWICE PER DAY
     Route: 048
     Dates: start: 20130628, end: 20130804
  3. JZOLOFT [Concomitant]
     Indication: DEPRESSION
     Dosage: 100MG PER DAY
     Route: 048
     Dates: start: 20130628, end: 20130804
  4. UNDEPRE [Concomitant]
     Dosage: 25MG PER DAY
     Route: 048
     Dates: start: 20130628, end: 20130804
  5. BROTIZOLAM [Concomitant]
     Dosage: .25MG PER DAY
     Route: 048
     Dates: start: 20130628, end: 20130804
  6. SEPAZON [Concomitant]
     Dosage: 1MG THREE TIMES PER DAY
     Route: 048
     Dates: start: 20130701, end: 20130804
  7. VEGETAMIN A [Concomitant]
     Dosage: 1IUAX PER DAY
     Route: 048
     Dates: start: 20130701, end: 20130804
  8. SEROQUEL [Concomitant]
     Route: 048
  9. LAMICTAL [Suspect]
     Indication: DEPRESSION
     Dosage: 25MG ALTERNATE DAYS
     Route: 048
     Dates: start: 20130704, end: 20130804
  10. SODIUM VALPROATE [Concomitant]
     Indication: DEPRESSION
     Dosage: 200MG THREE TIMES PER DAY
     Route: 048
     Dates: start: 20130628, end: 20130804
  11. LIMAS [Concomitant]
     Indication: DEPRESSION
     Dosage: 100MG THREE TIMES PER DAY
     Route: 048
     Dates: start: 20130628, end: 20130804

REACTIONS (4)
  - Drug-induced liver injury [Recovering/Resolving]
  - Pancytopenia [Recovering/Resolving]
  - Renal impairment [Recovering/Resolving]
  - Histiocytosis haematophagic [Recovering/Resolving]
